FAERS Safety Report 22321146 (Version 1)
Quarter: 2023Q2

REPORT INFORMATION
  Report Type: Spontaneous
  Country: CN (occurrence: CN)
  Receive Date: 20230515
  Receipt Date: 20230515
  Transmission Date: 20230722
  Serious: Yes (Other)
  Sender: FDA-Public Use
  Company Number: CN-HALEON-CNCH2023APC020385

PATIENT

DRUGS (1)
  1. IBUPROFEN [Suspect]
     Active Substance: IBUPROFEN
     Indication: Pyrexia
     Dosage: 0.3 G, QD
     Route: 048
     Dates: start: 20230502, end: 20230502

REACTIONS (3)
  - Haemorrhage subcutaneous [Recovering/Resolving]
  - Rash [Recovering/Resolving]
  - Pruritus [Recovered/Resolved]

NARRATIVE: CASE EVENT DATE: 20230502
